FAERS Safety Report 5339542-3 (Version None)
Quarter: 2007Q2

REPORT INFORMATION
  Report Type: 
  Country: None (occurrence: None)
  Receive Date: 20070404
  Receipt Date: 20070122
  Transmission Date: 20071010
  Serious: Yes (Other)
  Sender: FDA-Public Use
  Company Number: US200701004197

PATIENT
  Age: 76 Year
  Sex: Male

DRUGS (4)
  1. ALIMTA [Suspect]
     Indication: NON-SMALL CELL LUNG CANCER
     Dosage: 500 MG/M2
     Dates: start: 20061201
  2. FOLIC ACID [Concomitant]
  3. DEXAMETHASONE TAB [Concomitant]
  4. VITAMIN B12 [Concomitant]

REACTIONS (1)
  - FATIGUE [None]
